FAERS Safety Report 4506296-X (Version None)
Quarter: 2004Q4

REPORT INFORMATION
  Report Type: 
  Country: None (occurrence: None)
  Receive Date: 20041025
  Receipt Date: 20040205
  Transmission Date: 20050328
  Serious: Yes (Hospitalization)
  Sender: FDA-Public Use
  Company Number: US-JNJFOC-20031102552

PATIENT
  Age: 26 Year
  Sex: Female
  Weight: 60.782 kg

DRUGS (10)
  1. REMICADE [Suspect]
     Indication: CROHN'S DISEASE
     Dosage: , 1 IN 1 TOTAL, INTRAVENOUS;  5 MG/KG, 1 IN 1 TOTAL, INTRAVENOUS
     Route: 042
     Dates: start: 20000101
  2. REMICADE [Suspect]
     Indication: CROHN'S DISEASE
     Dosage: , 1 IN 1 TOTAL, INTRAVENOUS;  5 MG/KG, 1 IN 1 TOTAL, INTRAVENOUS
     Route: 042
     Dates: start: 20031030
  3. ASACOL [Concomitant]
  4. VICODIN [Concomitant]
  5. CRYSELLE (HORMONAL CONTRACEPTIVES FOR SYSTEMIC USE) [Concomitant]
  6. FERROUS SULFATE TAB [Concomitant]
  7. CALCIUM (CALCIUM) [Concomitant]
  8. MULTIVITAMIN (MULTIVITAMINS) [Concomitant]
  9. ENTOCORT (BUDESONIDE) [Concomitant]
  10. TYLENOL [Concomitant]

REACTIONS (6)
  - CONDITION AGGRAVATED [None]
  - CROHN'S DISEASE [None]
  - FUNGAL INFECTION [None]
  - MOUTH ULCERATION [None]
  - OSTEOPENIA [None]
  - SERUM SICKNESS [None]
